FAERS Safety Report 10224146 (Version 2)
Quarter: 2014Q2

REPORT INFORMATION
  Report Type: Other
  Country: JP (occurrence: JP)
  Receive Date: 20140609
  Receipt Date: 20140624
  Transmission Date: 20141212
  Serious: No
  Sender: FDA-Public Use
  Company Number: PHHY2014JP069817

PATIENT
  Age: 78 Year
  Sex: Male

DRUGS (2)
  1. EXELON PATCH [Suspect]
     Indication: DEMENTIA WITH LEWY BODIES
     Dosage: 18 MG DAILY (DAILY DOSE: 9.5 MG/24 HOURS)
     Route: 062
  2. EXELON PATCH [Suspect]
     Indication: OFF LABEL USE

REACTIONS (1)
  - No adverse event [Unknown]
